FAERS Safety Report 20728943 (Version 2)
Quarter: 2023Q1

REPORT INFORMATION
  Report Type: Spontaneous
  Country: ES (occurrence: ES)
  Receive Date: 20220420
  Receipt Date: 20230210
  Transmission Date: 20230418
  Serious: Yes (Hospitalization, Other)
  Sender: FDA-Public Use
  Company Number: ES-MACLEODS PHARMACEUTICALS US LTD-MAC2022035260

PATIENT

DRUGS (30)
  1. ESCITALOPRAM [Interacting]
     Active Substance: ESCITALOPRAM OXALATE
     Indication: Schizoaffective disorder
     Dosage: 15 MILLIGRAM, QD (START DATE 1994- DEC 2015)
     Route: 065
  2. ESCITALOPRAM [Interacting]
     Active Substance: ESCITALOPRAM OXALATE
     Dosage: 15 MILLIGRAM, QD (START DATE: JUN 2016-SEP 2016)
     Route: 065
  3. ESCITALOPRAM [Interacting]
     Active Substance: ESCITALOPRAM OXALATE
     Dosage: 20 MILLIGRAM, QD (START DATE: FEB 2017; END DATE: MAY 2017)
     Route: 065
  4. ARIPIPRAZOLE [Suspect]
     Active Substance: ARIPIPRAZOLE
     Indication: Schizoaffective disorder
     Dosage: 10 MILLIGRAM, QD (START DATE: FEB 2017; END DATE: MAY 2017)
     Route: 065
  5. ARIPIPRAZOLE [Suspect]
     Active Substance: ARIPIPRAZOLE
     Dosage: 400 MILLIGRAM, PER 28 DAYS (START DATE: DEC 2017)
     Route: 065
  6. OLANZAPINE [Interacting]
     Active Substance: OLANZAPINE
     Indication: Schizoaffective disorder
     Dosage: 20 MILLIGRAM, QD (START DATE: OCT 2016; END DATE: FEB 2017)
     Route: 048
  7. OLANZAPINE [Interacting]
     Active Substance: OLANZAPINE
     Dosage: 20 MILLIGRAM, QD (START DATE: MAY 2017; END DATE: DEC 2017)
     Route: 048
  8. QUETIAPINE [Interacting]
     Active Substance: QUETIAPINE
     Indication: Schizoaffective disorder
     Dosage: 100 MILLIGRAM, QD (START DATE: APR 2016; END DATE: JUN 2016)
     Route: 065
  9. QUETIAPINE [Interacting]
     Active Substance: QUETIAPINE
     Indication: Behaviour disorder
  10. FLUOXETINE [Interacting]
     Active Substance: FLUOXETINE HYDROCHLORIDE
     Indication: Schizoaffective disorder
     Dosage: 20 MILLIGRAM, QD (START DATE: APR 2016; END DATE: JUN 2016)
     Route: 065
  11. FLUOXETINE [Interacting]
     Active Substance: FLUOXETINE HYDROCHLORIDE
     Indication: Behaviour disorder
  12. HALOPERIDOL [Interacting]
     Active Substance: HALOPERIDOL
     Indication: Schizoaffective disorder
     Dosage: UNK (START DATE: MAY 2017; END DATE: DEC 2017)
     Route: 065
  13. AMISULPRIDE [Interacting]
     Active Substance: AMISULPRIDE
     Indication: Schizoaffective disorder
     Dosage: 400 MILLIGRAM, QD (START DATE: 1994; END DATE: DEC 2015)
     Route: 065
  14. AMISULPRIDE [Interacting]
     Active Substance: AMISULPRIDE
     Dosage: 800 MILLIGRAM, QD (START DATE: DEC 2015; END DATE: APR 2016)
     Route: 065
  15. AMISULPRIDE [Interacting]
     Active Substance: AMISULPRIDE
     Dosage: 600 MILLIGRAM, QD (START DATE: APR 2016; END DATE: JUN 2016)
     Route: 065
  16. AMISULPRIDE [Interacting]
     Active Substance: AMISULPRIDE
     Dosage: 400 MILLIGRAM, QD (START DATE: JUN 2016; END DATE: FEB 2017)
     Route: 065
  17. LORAZEPAM [Suspect]
     Active Substance: LORAZEPAM
     Indication: Schizoaffective disorder
     Dosage: UNK
     Route: 065
     Dates: start: 20160425, end: 20161004
  18. LORAZEPAM [Suspect]
     Active Substance: LORAZEPAM
     Dosage: UNK (START DATE: MAY 2017; END DATE: DEC 2017)
     Route: 065
  19. CLOBAZAM [Interacting]
     Active Substance: CLOBAZAM
     Indication: Schizoaffective disorder
     Dosage: UNK (START DATE: 1994 ; END DATE: 18 JAN 2016)
     Route: 065
  20. TRAZODONE [Interacting]
     Active Substance: TRAZODONE HYDROCHLORIDE
     Indication: Schizoaffective disorder
     Dosage: 200 MILLIGRAM, QD (START DATE: 1994 ; END DATE: DEC 2015)
     Route: 065
  21. TRAZODONE [Interacting]
     Active Substance: TRAZODONE HYDROCHLORIDE
     Dosage: 200 MILLIGRAM, QD (START DATE: JUN 2016; END DATE: SEP 2016)
     Route: 065
  22. VALPROATE SODIUM [Suspect]
     Active Substance: VALPROATE SODIUM
     Indication: Schizoaffective disorder
     Dosage: 500 MILLIGRAM, QD (START DATE: JUN 2016; END DATE: SEP 2016)
     Route: 065
  23. VALPROATE SODIUM [Suspect]
     Active Substance: VALPROATE SODIUM
     Dosage: 1000 MILLIGRAM, QD ((START DATE: OCT 2016; END DATE: MAY 2017))
     Route: 065
  24. CLONAZEPAM [Suspect]
     Active Substance: CLONAZEPAM
     Indication: Schizoaffective disorder
     Dosage: UNK(START DATE: FEB 2017)
     Route: 065
  25. LORMETAZEPAM [Suspect]
     Active Substance: LORMETAZEPAM
     Indication: Schizoaffective disorder
     Dosage: UNK (START DATE: 25 APR 2016; END DATE: 13 JUN 2016)
     Route: 065
  26. LORMETAZEPAM [Suspect]
     Active Substance: LORMETAZEPAM
     Dosage: UNK (START DATE: FEB 2017)
     Route: 065
  27. LEVOMEPROMAZINE [Suspect]
     Active Substance: LEVOMEPROMAZINE
     Indication: Schizoaffective disorder
     Dosage: 100 MILLIGRAM, QD (START DATE: OCT 2016; END DATE: FEB 2017)
     Route: 065
  28. LITHIUM [Suspect]
     Active Substance: LITHIUM
     Indication: Suicide attempt
     Dosage: 800 MILLIGRAM, QD (START DATE: 1994; END DATE: APR 2015)
     Route: 065
  29. LITHIUM [Suspect]
     Active Substance: LITHIUM
     Indication: Schizoaffective disorder bipolar type
     Dosage: 600 MILLIGRAM, QD (START DATE: FEB 2017; END DATE: MAY 2017)
     Route: 065
  30. LITHIUM [Suspect]
     Active Substance: LITHIUM
     Dosage: 1200 MILLIGRAM, QD (START DATE: DEC 2017)
     Route: 065

REACTIONS (17)
  - Gastrointestinal haemorrhage [Recovered/Resolved]
  - Hyperprolactinaemia [Recovered/Resolved]
  - Suicide attempt [Unknown]
  - Deep vein thrombosis [Recovered/Resolved]
  - Sedation complication [Recovered/Resolved]
  - Somnolence [Unknown]
  - Insomnia [Recovered/Resolved]
  - Extrapyramidal disorder [Recovered/Resolved]
  - Sexually inappropriate behaviour [Unknown]
  - Emotional disorder [Unknown]
  - Condition aggravated [Unknown]
  - Behaviour disorder [Unknown]
  - Drug level increased [Unknown]
  - Intentional overdose [Unknown]
  - Drug-genetic interaction [Unknown]
  - Drug interaction [Unknown]
  - Drug ineffective [Unknown]

NARRATIVE: CASE EVENT DATE: 20160425
